FAERS Safety Report 5832159-3 (Version None)
Quarter: 2008Q3

REPORT INFORMATION
  Report Type: 
  Country: None (occurrence: None)
  Receive Date: 20080804
  Receipt Date: 20080723
  Transmission Date: 20090109
  Serious: Yes (Hospitalization)
  Sender: FDA-Public Use
  Company Number: IT-AMGEN-UK279662

PATIENT
  Sex: Male

DRUGS (4)
  1. PANITUMUMAB - OBSERVATION/NO DRUG [Suspect]
     Indication: COLORECTAL CANCER
  2. IRINOTECAN HCL [Concomitant]
     Route: 042
     Dates: start: 20080109, end: 20080417
  3. LEUCOVORIN CALCIUM [Concomitant]
     Route: 042
     Dates: start: 20080109, end: 20080417
  4. FLUOROURACIL [Concomitant]
     Route: 042
     Dates: start: 20080109, end: 20080417

REACTIONS (2)
  - BRADYCARDIA [None]
  - SYNCOPE [None]
